FAERS Safety Report 26063762 (Version 1)
Quarter: 2025Q4

REPORT INFORMATION
  Report Type: Report from Study
  Country: JP (occurrence: JP)
  Receive Date: 20251119
  Receipt Date: 20251119
  Transmission Date: 20260118
  Serious: Yes (Other)
  Sender: ALEXION PHARMACEUTICALS
  Company Number: JP-ASTRAZENECA-240081578_013120_P_1

PATIENT
  Age: 57 Year
  Sex: Male
  Weight: 89 kg

DRUGS (28)
  1. DURVALUMAB [Suspect]
     Active Substance: DURVALUMAB
     Indication: Bile duct cancer
     Dosage: 1500 MILLIGRAM, UNK
     Dates: start: 20240423, end: 20240423
  2. DURVALUMAB [Suspect]
     Active Substance: DURVALUMAB
     Dosage: 1500 MILLIGRAM, Q4W
     Dates: start: 20240522, end: 20240806
  3. DURVALUMAB [Suspect]
     Active Substance: DURVALUMAB
     Dosage: 1500 MILLIGRAM, Q4W
     Dates: start: 20240917
  4. GEMCITABINE [Suspect]
     Active Substance: GEMCITABINE
     Indication: Bile duct cancer
     Dosage: 1000 MILLIGRAM/SQ. METER, UNK
     Route: 065
  5. GEMCITABINE [Suspect]
     Active Substance: GEMCITABINE
     Indication: Bile duct cancer
     Dosage: 1000 MILLIGRAM/SQ. METER, UNK
     Route: 065
  6. GEMCITABINE [Suspect]
     Active Substance: GEMCITABINE
     Dosage: 812.12 MILLIGRAM/SQ. METER, UNK
     Route: 065
  7. GEMCITABINE [Suspect]
     Active Substance: GEMCITABINE
     Dosage: 812.12 MILLIGRAM/SQ. METER, UNK
     Route: 065
  8. GEMCITABINE [Suspect]
     Active Substance: GEMCITABINE
     Dosage: 800 MILLIGRAM/SQ. METER, UNK
     Route: 065
  9. GEMCITABINE [Suspect]
     Active Substance: GEMCITABINE
     Dosage: 800 MILLIGRAM/SQ. METER, UNK
     Route: 065
  10. GEMCITABINE [Suspect]
     Active Substance: GEMCITABINE
     Dosage: 800 MILLIGRAM/SQ. METER, UNK
     Route: 065
  11. GEMCITABINE [Suspect]
     Active Substance: GEMCITABINE
     Dosage: 600 MILLIGRAM/SQ. METER, UNK
     Route: 065
     Dates: start: 20240723, end: 20240723
  12. GEMCITABINE [Suspect]
     Active Substance: GEMCITABINE
     Dosage: 1000 MILLIGRAM/SQ. METER
     Route: 065
     Dates: start: 20240423, end: 20240430
  13. GEMCITABINE [Suspect]
     Active Substance: GEMCITABINE
     Dosage: 812.12 MILLIGRAM/SQ. METER
     Route: 065
     Dates: start: 20240522, end: 20240528
  14. GEMCITABINE [Suspect]
     Active Substance: GEMCITABINE
     Dosage: 800 MILLIGRAM/SQ. METER
     Route: 065
     Dates: start: 20240611, end: 20240709
  15. GEMCITABINE [Suspect]
     Active Substance: GEMCITABINE
     Dosage: 600 MILLIGRAM/SQ. METER
     Route: 065
     Dates: start: 20240723, end: 20240820
  16. GEMCITABINE [Suspect]
     Active Substance: GEMCITABINE
     Dosage: 510 MILLIGRAM/SQ. METER
     Route: 065
     Dates: start: 20240917, end: 20240924
  17. GEMCITABINE [Suspect]
     Active Substance: GEMCITABINE
     Dosage: 505 MILLIGRAM/SQ. METER
     Route: 065
     Dates: start: 20241008, end: 20241015
  18. GEMCITABINE [Suspect]
     Active Substance: GEMCITABINE
     Dosage: 503 MILLIGRAM/SQ. METER
     Route: 065
     Dates: start: 20241029, end: 20241105
  19. OXYCODONE [Suspect]
     Active Substance: OXYCODONE
     Indication: Bile duct cancer
     Dosage: DOSE UNKNOWN
     Route: 065
  20. OXYCODONE [Suspect]
     Active Substance: OXYCODONE
     Dosage: DOSE UNKNOWN
     Route: 065
  21. OXYCODONE [Suspect]
     Active Substance: OXYCODONE
     Dosage: DOSE UNKNOWN
     Route: 065
  22. CISPLATIN [Suspect]
     Active Substance: CISPLATIN
     Indication: Bile duct cancer
     Dosage: 25 MILLIGRAM/SQ. METER
     Route: 065
     Dates: start: 20240423, end: 20240423
  23. CISPLATIN [Suspect]
     Active Substance: CISPLATIN
     Indication: Bile duct cancer
     Dosage: 20 MILLIGRAM/SQ. METER
     Route: 065
     Dates: start: 20240430, end: 20240430
  24. CISPLATIN [Suspect]
     Active Substance: CISPLATIN
     Dosage: 20.3 MILLIGRAM/SQ. METER
     Route: 065
     Dates: start: 20240522, end: 20240528
  25. CISPLATIN [Suspect]
     Active Substance: CISPLATIN
     Dosage: 20 MILLIGRAM/SQ. METER
     Route: 065
     Dates: start: 20240611, end: 20240709
  26. CISPLATIN [Suspect]
     Active Substance: CISPLATIN
     Dosage: 15 MILLIGRAM/SQ. METER
     Route: 065
     Dates: start: 20240723, end: 20240820
  27. CISPLATIN [Suspect]
     Active Substance: CISPLATIN
     Dosage: 13 MILLIGRAM/SQ. METER
     Route: 065
     Dates: start: 20240917, end: 20241015
  28. CISPLATIN [Suspect]
     Active Substance: CISPLATIN
     Dosage: 12.5 MILLIGRAM/SQ. METER
     Route: 065
     Dates: start: 20241029, end: 20241105

REACTIONS (3)
  - Rash [Recovered/Resolved]
  - Constipation [Not Recovered/Not Resolved]
  - Neutrophil count decreased [Recovered/Resolved]

NARRATIVE: CASE EVENT DATE: 20240512
